FAERS Safety Report 19719813 (Version 1)
Quarter: 2021Q3

REPORT INFORMATION
  Report Type: Spontaneous
  Country: FR (occurrence: FR)
  Receive Date: 20210819
  Receipt Date: 20210819
  Transmission Date: 20211014
  Serious: Yes (Other)
  Sender: FDA-Public Use
  Company Number: FR-ROCHE-2892864

PATIENT
  Age: 489 Month
  Sex: Female

DRUGS (6)
  1. NAVELBINE [Concomitant]
     Active Substance: VINORELBINE TARTRATE
     Dosage: UNKNOWN
     Dates: start: 202108
  2. TAXOL [Concomitant]
     Active Substance: PACLITAXEL
     Dosage: UNKNOWN
     Dates: start: 20110708, end: 20111209
  3. ENANTONE LP [Concomitant]
     Active Substance: LEUPROLIDE ACETATE
     Indication: BREAST CANCER
     Dates: end: 201006
  4. NOLVADEX [Suspect]
     Active Substance: TAMOXIFEN CITRATE
     Indication: BREAST CANCER
     Route: 048
     Dates: start: 200506, end: 201006
  5. NOLVADEX [Suspect]
     Active Substance: TAMOXIFEN CITRATE
     Route: 048
     Dates: start: 20111209
  6. AVASTIN [Suspect]
     Active Substance: BEVACIZUMAB
     Indication: BREAST CANCER
     Route: 065
     Dates: start: 20110708, end: 20111209

REACTIONS (1)
  - Malignant neoplasm progression [Unknown]

NARRATIVE: CASE EVENT DATE: 201208
